FAERS Safety Report 4945238-X (Version None)
Quarter: 2006Q1

REPORT INFORMATION
  Report Type: 
  Country: None (occurrence: None)
  Receive Date: 20060315
  Receipt Date: 20060315
  Transmission Date: 20060701
  Serious: Yes (Disabling)
  Sender: FDA-Public Use
  Company Number: None

PATIENT
  Sex: Male

DRUGS (1)
  1. RISPERDAL CONSTA [Suspect]
     Indication: BIPOLAR DISORDER
     Dosage: 25 MG ONCE IM
     Route: 030
     Dates: start: 20060207

REACTIONS (2)
  - RETINAL ARTERY OCCLUSION [None]
  - VISUAL DISTURBANCE [None]
